FAERS Safety Report 5690361-8 (Version None)
Quarter: 2008Q2

REPORT INFORMATION
  Report Type: 
  Country: None (occurrence: None)
  Receive Date: 20080401
  Receipt Date: 20030714
  Transmission Date: 20081010
  Serious: Yes (Death)
  Sender: FDA-Public Use
  Company Number: US-ROCHE-342413

PATIENT
  Age: 37 Year
  Sex: Male

DRUGS (2)
  1. FUZEON [Suspect]
     Indication: HIV INFECTION
     Route: 058
     Dates: start: 20030423
  2. CHEMOTHERAPY [Concomitant]

REACTIONS (1)
  - DEATH [None]
